FAERS Safety Report 5130648-0 (Version None)
Quarter: 2006Q4

REPORT INFORMATION
  Report Type: 
  Country: None (occurrence: None)
  Receive Date: 20061017
  Receipt Date: 20061017
  Transmission Date: 20070319
  Serious: Yes (Life-Threatening)
  Sender: FDA-Public Use
  Company Number: None

PATIENT
  Age: 62 Year
  Sex: Male
  Weight: 48.5349 kg

DRUGS (1)
  1. LOSARTAN POSTASSIUM [Suspect]
     Indication: HYPERTENSION
     Dosage: 25 MG Q 8 AM
     Dates: start: 20060210

REACTIONS (2)
  - SWELLING FACE [None]
  - SWOLLEN TONGUE [None]
